FAERS Safety Report 7741493-1 (Version None)
Quarter: 2011Q3

REPORT INFORMATION
  Report Type: 
  Country: None (occurrence: None)
  Receive Date: 20110909
  Receipt Date: 20110902
  Transmission Date: 20111222
  Serious: Yes (Other)
  Sender: FDA-Public Use
  Company Number: GB-MERCK-1109GBR00030

PATIENT
  Age: 76 Year
  Sex: Male

DRUGS (17)
  1. PROSCAR [Suspect]
     Route: 048
     Dates: start: 20100323
  2. PROSCAR [Suspect]
     Route: 048
     Dates: start: 20091127
  3. PROSCAR [Suspect]
     Route: 048
     Dates: start: 20100519
  4. PROSCAR [Suspect]
     Route: 048
     Dates: start: 20091229
  5. PROSCAR [Suspect]
     Route: 048
     Dates: start: 20110713
  6. SENNA [Suspect]
     Route: 065
  7. PROSCAR [Suspect]
     Route: 048
     Dates: start: 20110810
  8. PROSCAR [Suspect]
     Route: 048
     Dates: start: 20100414
  9. ZOCOR [Suspect]
     Route: 048
     Dates: start: 20110704
  10. PROSCAR [Suspect]
     Route: 048
     Dates: start: 20100616
  11. COZAAR [Suspect]
     Route: 048
     Dates: start: 20110713
  12. ASPIRIN [Suspect]
     Route: 065
     Dates: start: 20110517
  13. TAMSULOSIN HYDROCHLORIDE [Suspect]
     Route: 065
  14. PROSCAR [Suspect]
     Route: 048
     Dates: start: 20100219
  15. PROSCAR [Suspect]
     Route: 048
     Dates: start: 20100119
  16. CANDESARTAN [Suspect]
     Route: 065
  17. FLECAINIDE ACETATE [Concomitant]
     Route: 065
     Dates: start: 20110704

REACTIONS (3)
  - HAEMATURIA [None]
  - VENTRICULAR EXTRASYSTOLES [None]
  - LOSS OF CONSCIOUSNESS [None]
